FAERS Safety Report 7726008-6 (Version None)
Quarter: 2011Q3

REPORT INFORMATION
  Report Type: 
  Country: None (occurrence: None)
  Receive Date: 20110902
  Receipt Date: 20110822
  Transmission Date: 20111222
  Serious: Yes (Hospitalization)
  Sender: FDA-Public Use
  Company Number: US-ROCHE-798824

PATIENT
  Sex: Female

DRUGS (3)
  1. HERCEPTIN [Suspect]
     Route: 042
     Dates: start: 20110822
  2. HERCEPTIN [Suspect]
     Indication: BREAST CANCER
     Route: 042
     Dates: start: 20110512, end: 20110601
  3. TAXOL [Concomitant]

REACTIONS (4)
  - DEHYDRATION [None]
  - BACK PAIN [None]
  - COLITIS ISCHAEMIC [None]
  - CEREBROVASCULAR ACCIDENT [None]
